FAERS Safety Report 6306329-4 (Version None)
Quarter: 2009Q3

REPORT INFORMATION
  Report Type: 
  Country: None (occurrence: None)
  Receive Date: 20090812
  Receipt Date: 20090730
  Transmission Date: 20100115
  Serious: Yes (Other)
  Sender: FDA-Public Use
  Company Number: ES-GENENTECH-288169

PATIENT
  Age: 70 Year
  Sex: Female

DRUGS (1)
  1. LUCENTIS [Suspect]
     Indication: CHOROIDAL NEOVASCULARISATION
     Route: 031

REACTIONS (2)
  - CHOROIDAL NEOVASCULARISATION [None]
  - VISUAL ACUITY REDUCED [None]
